FAERS Safety Report 25613734 (Version 1)
Quarter: 2025Q3

REPORT INFORMATION
  Report Type: Spontaneous
  Country: US (occurrence: US)
  Receive Date: 20250728
  Receipt Date: 20250728
  Transmission Date: 20251021
  Serious: Yes (Death, Other)
  Sender: AMGEN
  Company Number: US-AMGEN-USASP2025141913

PATIENT
  Age: 65 Year
  Sex: Male

DRUGS (8)
  1. PREDNISONE [Suspect]
     Active Substance: PREDNISONE
     Indication: Acute myeloid leukaemia
     Route: 065
  2. TACROLIMUS [Concomitant]
     Active Substance: TACROLIMUS
     Indication: Acute myeloid leukaemia
     Route: 065
  3. SANDOSTATIN [Concomitant]
     Active Substance: OCTREOTIDE ACETATE
     Indication: Acute myeloid leukaemia
  4. SIROLIMUS [Concomitant]
     Active Substance: SIROLIMUS
     Indication: Acute myeloid leukaemia
  5. VALACYCLOVIR [Concomitant]
     Active Substance: VALACYCLOVIR HYDROCHLORIDE
  6. POSACONAZOLE [Concomitant]
     Active Substance: POSACONAZOLE
     Indication: Acute myeloid leukaemia
  7. MEROPENEM [Concomitant]
     Active Substance: MEROPENEM
     Indication: Acute myeloid leukaemia
  8. LINEZOLID [Concomitant]
     Active Substance: LINEZOLID

REACTIONS (2)
  - Death [Fatal]
  - Thrombotic microangiopathy [Unknown]
